FAERS Safety Report 5818983-1 (Version None)
Quarter: 2008Q3

REPORT INFORMATION
  Report Type: 
  Country: None (occurrence: None)
  Receive Date: 20080723
  Receipt Date: 20080702
  Transmission Date: 20090109
  Serious: Yes (Other)
  Sender: FDA-Public Use
  Company Number: US-BAYER-200812950BCC

PATIENT
  Age: 51 Year
  Sex: Female
  Weight: 84 kg

DRUGS (4)
  1. ASPIRIN [Suspect]
     Indication: DRUG USE FOR UNKNOWN INDICATION
  2. LIPITOR [Concomitant]
  3. EFFEXOR [Concomitant]
  4. PROTONIX [Concomitant]

REACTIONS (1)
  - DIABETES MELLITUS [None]
